FAERS Safety Report 18770506 (Version 3)
Quarter: 2023Q2

REPORT INFORMATION
  Report Type: Spontaneous
  Country: US (occurrence: US)
  Receive Date: 20210122
  Receipt Date: 20230504
  Transmission Date: 20230721
  Serious: Yes (Other)
  Sender: FDA-Public Use
  Company Number: US-GILEAD-2021-0512307

PATIENT
  Sex: Female
  Weight: 86.168 kg

DRUGS (53)
  1. ATRIPLA [Suspect]
     Active Substance: EFAVIRENZ\EMTRICITABINE\TENOFOVIR DISOPROXIL FUMARATE
     Indication: HIV infection
     Dosage: UNK
     Route: 048
     Dates: start: 200607, end: 201906
  2. BIKTARVY [Concomitant]
     Active Substance: BICTEGRAVIR SODIUM\EMTRICITABINE\TENOFOVIR ALAFENAMIDE FUMARATE
     Indication: HIV infection
  3. ACTOS [Concomitant]
     Active Substance: PIOGLITAZONE HYDROCHLORIDE
     Indication: Diabetes mellitus
  4. ADVAIR HFA [Concomitant]
     Active Substance: FLUTICASONE PROPIONATE\SALMETEROL XINAFOATE
     Indication: Asthma
  5. ALBUTEROL SULFATE [Concomitant]
     Active Substance: ALBUTEROL SULFATE
     Indication: Asthma
  6. ALVESCO [Concomitant]
     Active Substance: CICLESONIDE
     Indication: Asthma
  7. AMLODIPINE [Concomitant]
     Active Substance: AMLODIPINE BESYLATE
     Indication: Hypertension
  8. AMOXICILLIN\CLAVULANATE POTASSIUM [Concomitant]
     Active Substance: AMOXICILLIN\CLAVULANATE POTASSIUM
     Indication: Bacterial infection
  9. AMOXICILLIN [Concomitant]
     Active Substance: AMOXICILLIN
     Indication: Bacterial infection
  10. ASPIRIN [Concomitant]
     Active Substance: ASPIRIN
     Indication: Cardiac disorder
  11. AZITHROMYCIN [Concomitant]
     Active Substance: AZITHROMYCIN
  12. BUPROPION HYDROCHLORIDE [Concomitant]
     Active Substance: BUPROPION HYDROCHLORIDE
     Indication: Depression
  13. CEPHALEXIN [Concomitant]
     Active Substance: CEPHALEXIN
  14. CHANTIX [Concomitant]
     Active Substance: VARENICLINE TARTRATE
  15. CIPROFLOXACIN [Concomitant]
     Active Substance: CIPROFLOXACIN
  16. CLINDAMYCIN HYDROCHLORIDE [Concomitant]
     Active Substance: CLINDAMYCIN HYDROCHLORIDE
  17. CLONIDINE HYDROCHLORIDE [Concomitant]
     Active Substance: CLONIDINE HYDROCHLORIDE
  18. COMBIVENT [Concomitant]
     Active Substance: ALBUTEROL SULFATE\IPRATROPIUM BROMIDE
     Indication: Asthma
  19. COMBIVENT RESPIMAT [Concomitant]
     Active Substance: ALBUTEROL SULFATE\IPRATROPIUM BROMIDE
  20. CRESTOR [Concomitant]
     Active Substance: ROSUVASTATIN CALCIUM
     Indication: Blood cholesterol
  21. CYCLOBENZAPRINE [Concomitant]
     Active Substance: CYCLOBENZAPRINE
  22. CYPROHEPTADINE [Concomitant]
     Active Substance: CYPROHEPTADINE
  23. ATROPINE\DIPHENOXYLATE [Concomitant]
     Active Substance: ATROPINE\DIPHENOXYLATE
  24. DOXYCYCLINE HYCLATE [Concomitant]
     Active Substance: DOXYCYCLINE HYCLATE
  25. FEXOFENADINE [Concomitant]
     Active Substance: FEXOFENADINE HYDROCHLORIDE
     Indication: Hypersensitivity
  26. FLOVENT HFA [Concomitant]
     Active Substance: FLUTICASONE PROPIONATE
  27. FLUNISOLIDE [Concomitant]
     Active Substance: FLUNISOLIDE
  28. FLUTICASONE [Concomitant]
     Active Substance: FLUTICASONE
  29. FOSINOPRIL SODIUM [Concomitant]
     Active Substance: FOSINOPRIL SODIUM
  30. GABAPENTIN [Concomitant]
     Active Substance: GABAPENTIN
  31. HYDROCHLOROTHIAZIDE [Concomitant]
     Active Substance: HYDROCHLOROTHIAZIDE
  32. HYDROCODONE BITARTRATE AND ACETAMINOPHEN [Concomitant]
     Active Substance: ACETAMINOPHEN\HYDROCODONE BITARTRATE
  33. IBUPROFEN [Concomitant]
     Active Substance: IBUPROFEN
  34. LEVAQUIN [Concomitant]
     Active Substance: LEVOFLOXACIN
  35. LEVOCETIRIZINE HYDROCHLORIDE [Concomitant]
     Active Substance: LEVOCETIRIZINE HYDROCHLORIDE
  36. ROSUVASTATIN [Concomitant]
     Active Substance: ROSUVASTATIN
  37. PROMETHAZINE [Concomitant]
     Active Substance: PROMETHAZINE HYDROCHLORIDE
  38. PREDNISONE [Concomitant]
     Active Substance: PREDNISONE
  39. PIOGLITAZONE [Concomitant]
     Active Substance: PIOGLITAZONE
  40. OMEPRAZOLE [Concomitant]
     Active Substance: OMEPRAZOLE
  41. PROVENTIL HFA [Concomitant]
     Active Substance: ALBUTEROL SULFATE
  42. ALBUTEROL SULFATE [Concomitant]
     Active Substance: ALBUTEROL SULFATE
  43. NICOTINE [Concomitant]
     Active Substance: NICOTINE
  44. LANCETIN [Concomitant]
  45. TRAMADOL [Concomitant]
     Active Substance: TRAMADOL
  46. TRIAMCINOLONE [Concomitant]
     Active Substance: TRIAMCINOLONE
  47. MONTELUKAST [Concomitant]
     Active Substance: MONTELUKAST SODIUM
  48. NAPROXEN [Concomitant]
     Active Substance: NAPROXEN
  49. AMOXICILLIN\CLARITHROMYCIN\ESOMEPRAZOLE [Concomitant]
     Active Substance: AMOXICILLIN\CLARITHROMYCIN\ESOMEPRAZOLE
  50. NITROFURANTOIN [Concomitant]
     Active Substance: NITROFURANTOIN
  51. ONDANSETRON [Concomitant]
     Active Substance: ONDANSETRON
  52. METHYLPREDNISOLON ACIS [Concomitant]
  53. MIRTAZAPINE [Concomitant]
     Active Substance: MIRTAZAPINE

REACTIONS (7)
  - Osteoporosis [Unknown]
  - Renal impairment [Not Recovered/Not Resolved]
  - Anhedonia [Not Recovered/Not Resolved]
  - Emotional distress [Not Recovered/Not Resolved]
  - Nephropathy [Unknown]
  - Anxiety [Not Recovered/Not Resolved]
  - Pain [Not Recovered/Not Resolved]

NARRATIVE: CASE EVENT DATE: 20140101
